FAERS Safety Report 20322830 (Version 7)
Quarter: 2024Q1

REPORT INFORMATION
  Report Type: Spontaneous
  Country: US (occurrence: US)
  Receive Date: 20220111
  Receipt Date: 20240223
  Transmission Date: 20240410
  Serious: No
  Sender: FDA-Public Use
  Company Number: US-BRISTOL-MYERS SQUIBB COMPANY-BMS-2022-003357

PATIENT
  Age: 68 Year
  Sex: Female

DRUGS (1)
  1. ORENCIA [Suspect]
     Active Substance: ABATACEPT
     Indication: Product used for unknown indication
     Dosage: 125 MG/ML, QWK
     Route: 058

REACTIONS (7)
  - Bronchitis [Unknown]
  - Malaise [Unknown]
  - Upper respiratory tract infection [Recovering/Resolving]
  - Headache [Unknown]
  - Laryngitis [Unknown]
  - Cough [Unknown]
  - Intentional dose omission [Unknown]
